APPROVED DRUG PRODUCT: FLUOXETINE HYDROCHLORIDE
Active Ingredient: FLUOXETINE HYDROCHLORIDE
Strength: EQ 20MG BASE
Dosage Form/Route: CAPSULE;ORAL
Application: A076922 | Product #002
Applicant: STRIDES PHARMA INTERNATIONAL AG
Approved: Dec 16, 2004 | RLD: No | RS: No | Type: DISCN